FAERS Safety Report 5261003-0 (Version None)
Quarter: 2007Q1

REPORT INFORMATION
  Report Type: 
  Country: None (occurrence: None)
  Receive Date: 20070309
  Receipt Date: 20070228
  Transmission Date: 20070707
  Serious: Yes (Other)
  Sender: FDA-Public Use
  Company Number: 2007UW04271

PATIENT

DRUGS (1)
  1. IRESSA [Suspect]
     Route: 048
     Dates: start: 20050101

REACTIONS (3)
  - ASCITES [None]
  - OEDEMA [None]
  - PLEURAL EFFUSION [None]
